FAERS Safety Report 5942676-3 (Version None)
Quarter: 2008Q4

REPORT INFORMATION
  Report Type: 
  Country: None (occurrence: None)
  Receive Date: 20081106
  Receipt Date: 20080715
  Transmission Date: 20090506
  Serious: Yes (Hospitalization, Other)
  Sender: FDA-Public Use
  Company Number: US-RANBAXY-2008US-19089

PATIENT

DRUGS (5)
  1. ISOPTIN [Suspect]
     Indication: ESSENTIAL HYPERTENSION
     Dosage: 240 MG, UNK
     Route: 048
     Dates: end: 20071215
  2. SIMVASTATIN [Suspect]
     Indication: METABOLIC DISORDER
     Dosage: UNK
     Route: 048
  3. IRBESARTAN [Suspect]
     Indication: HYPERTENSIVE HEART DISEASE
  4. ESOMPRAZOLE [Suspect]
     Indication: OESOPHAGEAL DISORDER
     Dosage: 40 MG, QD
  5. ALENDRONATE SODIUM [Suspect]
     Indication: OSTEOPOROSIS
     Dosage: 70 MG, QD

REACTIONS (2)
  - CONSTIPATION [None]
  - INTESTINAL OBSTRUCTION [None]
